FAERS Safety Report 10755866 (Version 1)
Quarter: 2015Q1

REPORT INFORMATION
  Report Type: Spontaneous
  Country: IT (occurrence: IT)
  Receive Date: 20150202
  Receipt Date: 20150202
  Transmission Date: 20150721
  Serious: Yes (Death, Hospitalization)
  Sender: FDA-Public Use
  Company Number: IT-SA-2015SA002972

PATIENT
  Age: 86 Year
  Sex: Female

DRUGS (9)
  1. MINITRAN [Concomitant]
     Active Substance: NITROGLYCERIN
     Dosage: TRANSDERMAL PATCH^ 15 PATCHES
  2. LANSOPRAZOLE. [Concomitant]
     Active Substance: LANSOPRAZOLE
     Dosage: 15 MG HARD CAPSULE ^ 14 CAPSULES
  3. TILDIEM [Concomitant]
     Active Substance: DILTIAZEM HYDROCHLORIDE
     Dosage: 200 MG PROLONGED RELEASE HARD CAPSULE^ 36 CAPSULE
  4. LASIX [Concomitant]
     Active Substance: FUROSEMIDE
     Dosage: 25 MG TABLETS^30 TABLETS
  5. PLAVIX [Suspect]
     Active Substance: CLOPIDOGREL BISULFATE
     Route: 048
     Dates: start: 20090101, end: 20141205
  6. TAVOR [Concomitant]
     Active Substance: LORAZEPAM
     Dosage: 2.5 MG TABLET, 20 TABLETS
  7. PERINDOPRIL [Concomitant]
     Active Substance: PERINDOPRIL
  8. CYMBALTA [Concomitant]
     Active Substance: DULOXETINE HYDROCHLORIDE
     Dosage: 60 MG GASTRORESISTANT HARD CAPSULE USE ORAL 28 CAPSULE
     Route: 048
  9. LEVOPRAID [Concomitant]
     Active Substance: SULPIRIDE

REACTIONS (3)
  - Haematoma [Unknown]
  - Death [Fatal]
  - Pain [Unknown]

NARRATIVE: CASE EVENT DATE: 20141205
